FAERS Safety Report 6450717-2 (Version None)
Quarter: 2009Q4

REPORT INFORMATION
  Report Type: 
  Country: None (occurrence: None)
  Receive Date: 20091123
  Receipt Date: 20091119
  Transmission Date: 20100525
  Serious: Yes (Other)
  Sender: FDA-Public Use
  Company Number: DE-B.I. PHARMACEUTICALS,INC./RIDGEFIELD-2009-DE-07205DE

PATIENT
  Sex: Female
  Weight: 50 kg

DRUGS (2)
  1. MICARDIS [Suspect]
     Dosage: 90 ANZ
     Route: 048
  2. BETADORM D [Suspect]
     Dosage: 20 ANZ
     Route: 048

REACTIONS (3)
  - DRUG ABUSE [None]
  - OVERDOSE [None]
  - SUICIDE ATTEMPT [None]
